FAERS Safety Report 5765423-7 (Version None)
Quarter: 2008Q2

REPORT INFORMATION
  Report Type: 
  Country: None (occurrence: None)
  Receive Date: 20080611
  Receipt Date: 20080611
  Transmission Date: 20081010
  Serious: Yes (Other)
  Sender: FDA-Public Use
  Company Number: A0732419A

PATIENT
  Age: 29 Year
  Sex: Female
  Weight: 69.5 kg

DRUGS (1)
  1. ALLI [Suspect]
     Dates: start: 20080606

REACTIONS (3)
  - HAEMATOCHEZIA [None]
  - RECTAL DISCHARGE [None]
  - RECTAL HAEMORRHAGE [None]
